FAERS Safety Report 4832729-5 (Version None)
Quarter: 2005Q4

REPORT INFORMATION
  Report Type: 
  Country: None (occurrence: None)
  Receive Date: 20051117
  Receipt Date: 20051117
  Transmission Date: 20060501
  Serious: Yes (Other)
  Sender: FDA-Public Use
  Company Number: None

PATIENT
  Age: 39 Year
  Sex: Female
  Weight: 77.1115 kg

DRUGS (3)
  1. LEVAQUIN [Suspect]
     Indication: BRONCHITIS
     Dosage: DAY   PO
     Route: 048
     Dates: start: 20050815, end: 20050829
  2. LEVAQUIN [Suspect]
     Indication: PNEUMONIA PRIMARY ATYPICAL
     Dosage: DAY   PO
     Route: 048
     Dates: start: 20050815, end: 20050829
  3. CIPROFLOXACIN [Suspect]
     Indication: SINUSITIS
     Dosage: DAY   PO
     Route: 048
     Dates: start: 20040818, end: 20040831

REACTIONS (37)
  - ABDOMINAL DISTENSION [None]
  - ADVERSE DRUG REACTION [None]
  - AGITATION [None]
  - AMNESIA [None]
  - ANXIETY [None]
  - BACK PAIN [None]
  - BALANCE DISORDER [None]
  - BURNING SENSATION [None]
  - CONFUSIONAL STATE [None]
  - COORDINATION ABNORMAL [None]
  - DEPERSONALISATION [None]
  - DIARRHOEA [None]
  - DISTURBANCE IN ATTENTION [None]
  - ERYTHEMA [None]
  - FALL [None]
  - FATIGUE [None]
  - FIBROMYALGIA [None]
  - FLATULENCE [None]
  - FRUSTRATION [None]
  - HYPERACUSIS [None]
  - IMPAIRED WORK ABILITY [None]
  - INSOMNIA [None]
  - INTERVERTEBRAL DISC SPACE NARROWING [None]
  - MENTAL DISORDER [None]
  - MIGRAINE [None]
  - MULTIPLE SCLEROSIS [None]
  - MUSCLE ATROPHY [None]
  - MUSCLE SPASMS [None]
  - MYALGIA [None]
  - NECK PAIN [None]
  - PANIC ATTACK [None]
  - PAROSMIA [None]
  - RHEUMATOID ARTHRITIS [None]
  - RHEUMATOID FACTOR INCREASED [None]
  - SHOULDER PAIN [None]
  - STRESS [None]
  - WEIGHT DECREASED [None]
